FAERS Safety Report 17943621 (Version 3)
Quarter: 2020Q3

REPORT INFORMATION
  Report Type: Spontaneous
  Country: GB (occurrence: GB)
  Receive Date: 20200625
  Receipt Date: 20200806
  Transmission Date: 20201103
  Serious: Yes (Other)
  Sender: FDA-Public Use
  Company Number: GB-PFIZER INC-2020241346

PATIENT
  Age: 53 Year
  Sex: Female

DRUGS (6)
  1. VITAMIN C [Concomitant]
     Active Substance: ASCORBIC ACID
     Dosage: 15000 MG
  2. PROVERA [Suspect]
     Active Substance: MEDROXYPROGESTERONE ACETATE
     Indication: ENDOMETRIAL THICKENING
     Dosage: 10 MG, 2X/DAY (IN THE MORNING AND EVENING)
     Dates: start: 201611
  3. DOXAZOSIN [Concomitant]
     Active Substance: DOXAZOSIN MESYLATE
     Dosage: 2 MG, DAILY
  4. SUKKARTO [Suspect]
     Active Substance: METFORMIN HYDROCHLORIDE
     Dosage: 1000 MG, 2X/DAY
  5. AMLODIPINE [Concomitant]
     Active Substance: AMLODIPINE BESYLATE
     Dosage: 5 MG, DAILY
  6. SUKKARTO [Suspect]
     Active Substance: METFORMIN HYDROCHLORIDE
     Dosage: 2000 MG, 2X/DAY

REACTIONS (16)
  - Hypertension [Unknown]
  - Alopecia [Unknown]
  - Haemorrhage [Unknown]
  - Skin reaction [Unknown]
  - Mass [Unknown]
  - Urinary tract infection [Unknown]
  - Frustration tolerance decreased [Unknown]
  - Product use issue [Unknown]
  - Illness [Unknown]
  - Nail disorder [Unknown]
  - Inappropriate schedule of product administration [Unknown]
  - Grief reaction [Unknown]
  - Musculoskeletal stiffness [Unknown]
  - Weight increased [Unknown]
  - Polycystic ovaries [Unknown]
  - Off label use [Unknown]

NARRATIVE: CASE EVENT DATE: 2019
